FAERS Safety Report 13035865 (Version 1)
Quarter: 2016Q4

REPORT INFORMATION
  Report Type: Spontaneous
  Country: US (occurrence: US)
  Receive Date: 20161216
  Receipt Date: 20161216
  Transmission Date: 20170207
  Serious: No
  Sender: FDA-Public Use
  Company Number: US-PFIZER INC-2016581642

PATIENT
  Age: 79 Year
  Sex: Female
  Weight: 61 kg

DRUGS (2)
  1. NORVASC [Suspect]
     Active Substance: AMLODIPINE BESYLATE
     Indication: HYPERTENSION
     Dosage: 10 MG, 1X/DAY
     Route: 048
     Dates: start: 201608
  2. CENTRUM SILVER +50 [Concomitant]
     Indication: VITAMIN SUPPLEMENTATION
     Dosage: 1 DF, 1X/DAY
     Route: 048

REACTIONS (7)
  - Skin induration [Unknown]
  - Pruritus [Not Recovered/Not Resolved]
  - Skin exfoliation [Unknown]
  - Urticaria [Not Recovered/Not Resolved]
  - Intentional product misuse [Unknown]
  - Dry skin [Unknown]
  - Rash papular [Unknown]

NARRATIVE: CASE EVENT DATE: 201608
